FAERS Safety Report 15940444 (Version 3)
Quarter: 2019Q2

REPORT INFORMATION
  Report Type: Spontaneous
  Country: US (occurrence: US)
  Receive Date: 20190208
  Receipt Date: 20190410
  Transmission Date: 20190711
  Serious: Yes (Other)
  Sender: FDA-Public Use
  Company Number: US-ASTRAZENECA-2018SF64584

PATIENT
  Age: 26157 Day
  Sex: Female

DRUGS (26)
  1. CLONAZEPAM. [Concomitant]
     Active Substance: CLONAZEPAM
     Dates: start: 20030820
  2. CYCLOBENZAPRINE. [Concomitant]
     Active Substance: CYCLOBENZAPRINE
     Dates: start: 20030619
  3. LEXAPRO [Concomitant]
     Active Substance: ESCITALOPRAM OXALATE
     Dates: start: 20030820
  4. PRILOSEC [Suspect]
     Active Substance: OMEPRAZOLE MAGNESIUM
     Route: 048
     Dates: start: 2001, end: 2003
  5. TRAZODONE [Concomitant]
     Active Substance: TRAZODONE HYDROCHLORIDE
     Dates: start: 20040106
  6. NYSTATIN. [Concomitant]
     Active Substance: NYSTATIN
  7. PRILOSEC [Suspect]
     Active Substance: OMEPRAZOLE MAGNESIUM
     Dosage: GENERIC
     Route: 065
     Dates: start: 2003, end: 2004
  8. ASPIRIN. [Concomitant]
     Active Substance: ASPIRIN
  9. NEXIUM [Suspect]
     Active Substance: ESOMEPRAZOLE MAGNESIUM
     Route: 048
     Dates: start: 1990, end: 2010
  10. ZOCOR [Concomitant]
     Active Substance: SIMVASTATIN
     Dates: start: 20030722
  11. BACTROBAN [Concomitant]
     Active Substance: MUPIROCIN\MUPIROCIN CALCIUM
  12. NEXIUM [Suspect]
     Active Substance: ESOMEPRAZOLE MAGNESIUM
     Route: 048
     Dates: start: 20061017
  13. LEVAQUIN [Concomitant]
     Active Substance: LEVOFLOXACIN
     Dates: start: 20030619
  14. PREMARIN [Concomitant]
     Active Substance: ESTROGENS, CONJUGATED
  15. DIFLUCAN [Concomitant]
     Active Substance: FLUCONAZOLE
  16. PRAVASTATIN. [Concomitant]
     Active Substance: PRAVASTATIN
  17. PRILOSEC [Suspect]
     Active Substance: OMEPRAZOLE MAGNESIUM
     Route: 048
     Dates: start: 20010901
  18. PLAVIX [Concomitant]
     Active Substance: CLOPIDOGREL BISULFATE
     Dates: start: 20030619
  19. INDOCIN [Concomitant]
     Active Substance: INDOMETHACIN
  20. DESOXIMETASONE. [Concomitant]
     Active Substance: DESOXIMETASONE
  21. NEXIUM [Suspect]
     Active Substance: ESOMEPRAZOLE MAGNESIUM
     Route: 048
     Dates: start: 2003, end: 2010
  22. ESTAZOLAM. [Concomitant]
     Active Substance: ESTAZOLAM
  23. AMBIEN [Concomitant]
     Active Substance: ZOLPIDEM TARTRATE
  24. PRILOSEC [Suspect]
     Active Substance: OMEPRAZOLE MAGNESIUM
     Route: 048
     Dates: start: 1990, end: 2010
  25. HYDROCODONE BITARTRATE AND ACETAMINOPHEN [Concomitant]
     Active Substance: ACETAMINOPHEN\HYDROCODONE BITARTRATE
     Dosage: 5/500 MG
     Dates: start: 20030924
  26. LINDANE. [Concomitant]
     Active Substance: LINDANE

REACTIONS (4)
  - Hyperparathyroidism secondary [Unknown]
  - Acute kidney injury [Not Recovered/Not Resolved]
  - End stage renal disease [Unknown]
  - Chronic kidney disease [Not Recovered/Not Resolved]

NARRATIVE: CASE EVENT DATE: 20170914
